FAERS Safety Report 9187998 (Version 1)
Quarter: 2013Q1

REPORT INFORMATION
  Report Type: Spontaneous
  Country: US (occurrence: US)
  Receive Date: 20130325
  Receipt Date: 20130325
  Transmission Date: 20140127
  Serious: No
  Sender: FDA-Public Use
  Company Number: US-MYLANLABS-2012S1024168

PATIENT
  Sex: Female
  Weight: 39.92 kg

DRUGS (3)
  1. FENTANYL TRANSDERMAL SYSTEM [Suspect]
     Indication: PAIN IN EXTREMITY
     Dosage: Q48HR
     Route: 062
     Dates: start: 2008
  2. NEURONTIN [Concomitant]
     Indication: PAIN
     Route: 048
  3. METHADONE [Concomitant]
     Indication: PAIN
     Route: 048

REACTIONS (6)
  - Drug effect decreased [Not Recovered/Not Resolved]
  - Pain [Not Recovered/Not Resolved]
  - Somnolence [Not Recovered/Not Resolved]
  - Fall [Recovered/Resolved]
  - Injury [Recovered/Resolved]
  - Weight decreased [Not Recovered/Not Resolved]
